FAERS Safety Report 25386192 (Version 1)
Quarter: 2025Q2

REPORT INFORMATION
  Report Type: Spontaneous
  Country: US (occurrence: None)
  Receive Date: 20250530
  Receipt Date: 20250530
  Transmission Date: 20250717
  Serious: No
  Sender: FDA-CTU
  Company Number: None

PATIENT
  Age: 87 Year
  Sex: Male
  Weight: 67.5 kg

DRUGS (11)
  1. JARDIANCE [Suspect]
     Active Substance: EMPAGLIFLOZIN
     Indication: Diabetes mellitus
     Dosage: OTHER QUANTITY : 30 TABLET(S);?FREQUENCY : DAILY;?
     Route: 048
  2. ALENDRONATE [Concomitant]
     Active Substance: ALENDRONATE SODIUM
  3. DULOXETINE [Concomitant]
     Active Substance: DULOXETINE
  4. FUROSEMIDE [Concomitant]
     Active Substance: FUROSEMIDE
  5. METOPROLOL [Concomitant]
     Active Substance: METOPROLOL
  6. POTASSIUM CHLORIDE [Concomitant]
     Active Substance: POTASSIUM CHLORIDE
  7. WARFARIN [Concomitant]
     Active Substance: WARFARIN
  8. TRAMADOL [Concomitant]
     Active Substance: TRAMADOL
  9. lidocaine 4% patches [Concomitant]
  10. DICLOFENAC [Concomitant]
     Active Substance: DICLOFENAC
  11. ACETAMINOPHEN [Concomitant]
     Active Substance: ACETAMINOPHEN

REACTIONS (3)
  - Intentional product use issue [None]
  - Nausea [None]
  - Retching [None]

NARRATIVE: CASE EVENT DATE: 20250529
